FAERS Safety Report 18124591 (Version 1)
Quarter: 2020Q3

REPORT INFORMATION
  Report Type: Spontaneous
  Country: DE (occurrence: DE)
  Receive Date: 20200807
  Receipt Date: 20200807
  Transmission Date: 20201103
  Serious: Yes (Disabling, Other)
  Sender: FDA-Public Use
  Company Number: DE-ASTRAZENECA-2020SE96565

PATIENT

DRUGS (1)
  1. FASENRA [Suspect]
     Active Substance: BENRALIZUMAB
     Dosage: UNKNOWN
     Route: 058

REACTIONS (14)
  - Fatigue [Unknown]
  - Pruritus [Unknown]
  - Dermatitis allergic [Unknown]
  - Headache [Unknown]
  - Cystitis [Unknown]
  - Muscle spasms [Unknown]
  - Inflammation [Unknown]
  - Pain in extremity [Unknown]
  - Musculoskeletal discomfort [Unknown]
  - Therapeutic product effect decreased [Unknown]
  - Visual impairment [Unknown]
  - Herpes virus infection [Unknown]
  - Myalgia [Unknown]
  - Sinusitis [Unknown]
